FAERS Safety Report 12918992 (Version 2)
Quarter: 2016Q4

REPORT INFORMATION
  Report Type: Spontaneous
  Country: US (occurrence: US)
  Receive Date: 20161108
  Receipt Date: 20161124
  Transmission Date: 20170207
  Serious: Yes (Death)
  Sender: FDA-Public Use
  Company Number: US-ROCHE-1851609

PATIENT
  Age: 98 Year
  Sex: Female

DRUGS (1)
  1. ERIVEDGE [Suspect]
     Active Substance: VISMODEGIB
     Indication: BASAL CELL CARCINOMA
     Dosage: UNKNOWN DOSE AND FREQUENCY ;ONGOING: NO
     Route: 048
     Dates: start: 20131021, end: 20131215

REACTIONS (4)
  - Alopecia [Recovered/Resolved]
  - Gastrointestinal carcinoma [Fatal]
  - Decreased appetite [Recovered/Resolved]
  - Weight decreased [Recovered/Resolved]

NARRATIVE: CASE EVENT DATE: 20140302
